FAERS Safety Report 6086484-4 (Version None)
Quarter: 2009Q1

REPORT INFORMATION
  Report Type: 
  Country: None (occurrence: None)
  Receive Date: 20090223
  Receipt Date: 20090216
  Transmission Date: 20090719
  Serious: Yes (Life-Threatening, Hospitalization)
  Sender: FDA-Public Use
  Company Number: PHHY2009FR05534

PATIENT
  Sex: Female

DRUGS (14)
  1. SINTROM [Suspect]
     Dosage: 4 MG, QD
     Dates: end: 20080718
  2. VALSARTAN [Suspect]
     Dosage: 80 MG DAILY
     Dates: end: 20080718
  3. FUCIDINE CAP [Concomitant]
  4. BRISTOPEN [Concomitant]
  5. PYOSTACINE [Concomitant]
  6. DIURETICS [Concomitant]
  7. GLUCOPHAGE [Concomitant]
     Dosage: 1000 MG, BID
     Dates: start: 20010101
  8. ARIMIDEX [Concomitant]
     Dosage: 1 MG,DAILY
  9. XYZAL [Concomitant]
     Dosage: 1 DF, DAILY
  10. LASIX [Concomitant]
     Dosage: 40 MG, BID
  11. ZYLORIC [Concomitant]
     Dosage: 300 MG,DAILY
  12. TAHOR [Concomitant]
     Dosage: 20 MG, DAILY
  13. DIASTABOL [Concomitant]
     Dosage: 50 MG, TID
  14. DI-ANTALVIC [Concomitant]
     Dosage: 3 DF, DAILY

REACTIONS (17)
  - ACID BASE BALANCE ABNORMAL [None]
  - ANURIA [None]
  - BLOOD POTASSIUM INCREASED [None]
  - BLOOD PRESSURE DECREASED [None]
  - CREATININE RENAL CLEARANCE DECREASED [None]
  - DEHYDRATION [None]
  - DIARRHOEA [None]
  - DRUG LEVEL ABOVE THERAPEUTIC [None]
  - ELECTROLYTE IMBALANCE [None]
  - HAEMATEMESIS [None]
  - HEPARIN-INDUCED THROMBOCYTOPENIA [None]
  - HYPERGLYCAEMIA [None]
  - INTERNATIONAL NORMALISED RATIO INCREASED [None]
  - LACTIC ACIDOSIS [None]
  - PROTHROMBIN TIME SHORTENED [None]
  - RENAL FAILURE [None]
  - SHOCK [None]
